FAERS Safety Report 9105389 (Version 1)
Quarter: 2013Q1

REPORT INFORMATION
  Report Type: Spontaneous
  Country: US (occurrence: US)
  Receive Date: 20130220
  Receipt Date: 20130220
  Transmission Date: 20140127
  Serious: Yes (Hospitalization, Other)
  Sender: FDA-Public Use
  Company Number: CHPA2009US06063

PATIENT
  Age: 79 Year
  Sex: Female
  Weight: 76.64 kg

DRUGS (15)
  1. MAALOX ANTACID/ANTIGAS MAX QDTABS ASST [Suspect]
     Dosage: 1 TABLET, 2 TO 3 TIMES DAILY
     Route: 048
  2. MAALOX ANTACID/ANTIGAS MAX QDTABS ASST [Suspect]
     Dosage: 2 TABLETS IN A DAY
     Route: 048
     Dates: start: 20090216, end: 20090222
  3. MAALOX ANTACID/ANTIGAS MAX LIQ [Suspect]
     Indication: GASTROOESOPHAGEAL REFLUX DISEASE
     Dosage: 2 TSP IN 24 HOURS
     Route: 048
     Dates: start: 1990
  4. MAALOX ANTACID [Suspect]
     Indication: GASTROOESOPHAGEAL REFLUX DISEASE
     Dosage: UNK, UNK
  5. TUMS [Concomitant]
     Dosage: UNK, 6 TIMES PER DAY
  6. BENICAR [Concomitant]
     Dosage: 20 MG, UNK
  7. VITAMIN D [Concomitant]
     Dosage: 2000 MG, UNK
  8. VITAMIN E [Concomitant]
     Dosage: 400 IU, BID
  9. OCEAN NASAL SPRAY [Concomitant]
  10. VASELINE [Concomitant]
     Dosage: APPLY IN NOSTRILS AFTER SPRAY
  11. SYNTHROID [Concomitant]
     Dosage: 88 MG, UNK
  12. ACIPHEX [Concomitant]
     Dosage: 20 MG, UNK
  13. SYSTANE [Concomitant]
  14. CADITOR [Concomitant]
  15. LOVAZA [Concomitant]

REACTIONS (14)
  - Asthenia [Not Recovered/Not Resolved]
  - Blood glucose decreased [Recovered/Resolved]
  - Meningioma benign [Not Recovered/Not Resolved]
  - Brain oedema [Not Recovered/Not Resolved]
  - Hernia [Recovered/Resolved]
  - Oesophageal disorder [Not Recovered/Not Resolved]
  - Overweight [Recovered/Resolved]
  - Tremor [Not Recovered/Not Resolved]
  - Paraesthesia oral [Recovered/Resolved]
  - Sleep disorder [Not Recovered/Not Resolved]
  - Off label use [Unknown]
  - Therapeutic response unexpected [Unknown]
  - Drug administration error [Unknown]
  - Incorrect dose administered [Unknown]
